FAERS Safety Report 25108751 (Version 2)
Quarter: 2025Q2

REPORT INFORMATION
  Report Type: Report from Study
  Country: IL (occurrence: IL)
  Receive Date: 20250322
  Receipt Date: 20250403
  Transmission Date: 20250716
  Serious: Yes (Hospitalization)
  Sender: ABBVIE
  Company Number: IL-ABBVIE-6186900

PATIENT
  Age: 78 Year
  Sex: Female

DRUGS (2)
  1. CARBIDOPA\LEVODOPA [Suspect]
     Active Substance: CARBIDOPA\LEVODOPA
     Indication: Parkinson^s disease
     Route: 050
  2. CARBIDOPA\LEVODOPA [Suspect]
     Active Substance: CARBIDOPA\LEVODOPA
     Route: 050
     Dates: start: 20210803

REACTIONS (6)
  - Dehydration [Unknown]
  - Depressed level of consciousness [Unknown]
  - Sepsis [Unknown]
  - Confusional state [Unknown]
  - Decubitus ulcer [Unknown]
  - Weight decreased [Unknown]

NARRATIVE: CASE EVENT DATE: 20250309
